FAERS Safety Report 6480841-X (Version None)
Quarter: 2009Q4

REPORT INFORMATION
  Report Type: 
  Country: None (occurrence: None)
  Receive Date: 20091208
  Receipt Date: 20091127
  Transmission Date: 20100525
  Serious: Yes (Death, Hospitalization, Other)
  Sender: FDA-Public Use
  Company Number: JP-WYE-H12387709

PATIENT
  Age: 70 Year
  Sex: Female

DRUGS (18)
  1. ANCARON [Suspect]
     Indication: VENTRICULAR TACHYCARDIA
     Dosage: 400 MG FROM 30-JAN-2008 TO UNKNOWN; THEN 300 MG UNTIL 02-APR-2009
     Route: 048
  2. ANCARON [Suspect]
     Dosage: 100 MG FROM 03-APR-2009 TO 12-MAY-2009; THEN 200 MG FROM 13-MAY-2009 TO 27-MAY-2009
     Route: 048
  3. ANCARON [Suspect]
     Dosage: 100 MG FROM 28-MAY-2009 TO 29-MAY-2009
     Route: 048
  4. PARIET [Concomitant]
     Dosage: UNSPECIFIED
     Dates: end: 20090529
  5. COVERSYL [Concomitant]
     Dosage: UNSPECIFIED
     Dates: end: 20090529
  6. ARTIST [Concomitant]
     Dosage: UNSPECIFIED
  7. PLAVIX [Concomitant]
     Dosage: UNSPECIFIED
     Dates: end: 20090529
  8. PANTOSIN [Concomitant]
     Dosage: UNSPECIFIED
     Dates: end: 20090529
  9. ALDACTONE [Concomitant]
     Dosage: UNSPECIFIED
     Dates: end: 20090529
  10. DEPAS [Concomitant]
     Dosage: UNSPECIFIED
     Dates: end: 20090529
  11. ZYLORIC [Concomitant]
     Dosage: UNSPECIFIED
     Dates: end: 20090529
  12. PIMOBENDAN [Concomitant]
     Dosage: UNSPECIFIED
     Dates: end: 20090529
  13. CLARITH [Concomitant]
     Dosage: UNSPECIFIED
     Dates: start: 20090511, end: 20090529
  14. NEOPHAGEN [Concomitant]
     Dosage: UNSPECIFIED
     Dates: end: 20090529
  15. VITAMEDIN [Concomitant]
     Dosage: UNSPECIFIED
     Dates: end: 20090529
  16. ASCORBIC ACID [Concomitant]
     Dosage: UNSPECIFIED
     Dates: end: 20090529
  17. OMEPRAL [Concomitant]
     Dosage: UNSPECIFIED
     Dates: start: 20090529
  18. LIPITOR [Concomitant]
     Dosage: UNSPECIFIED
     Dates: end: 20090529

REACTIONS (6)
  - ATRIAL FIBRILLATION [None]
  - CARDIAC FAILURE [None]
  - CONDITION AGGRAVATED [None]
  - HEPATITIS FULMINANT [None]
  - MULTI-ORGAN FAILURE [None]
  - VENTRICULAR TACHYCARDIA [None]
